FAERS Safety Report 6062881-8 (Version None)
Quarter: 2009Q1

REPORT INFORMATION
  Report Type: 
  Country: None (occurrence: None)
  Receive Date: 20090203
  Receipt Date: 20090202
  Transmission Date: 20090719
  Serious: Yes (Other)
  Sender: FDA-Public Use
  Company Number: A0766372A

PATIENT
  Age: 75 Year
  Sex: Male

DRUGS (5)
  1. NICORETTE [Suspect]
     Indication: SMOKING CESSATION THERAPY
     Dosage: 10GUM PER DAY
     Route: 002
     Dates: start: 20090112, end: 20090114
  2. COVERSYL [Concomitant]
     Indication: HYPERTENSION
     Dosage: 2.5MG PER DAY
  3. PERSANTINE [Concomitant]
     Indication: HYPERTENSION
     Dosage: 200MG TWICE PER DAY
  4. SIMVASTATIN [Concomitant]
     Dosage: 40MG PER DAY
  5. FINASTERIDE [Concomitant]
     Dosage: 5MG PER DAY

REACTIONS (6)
  - ANGIOEDEMA [None]
  - DYSPNOEA [None]
  - LIP OEDEMA [None]
  - OEDEMA MOUTH [None]
  - SWOLLEN TONGUE [None]
  - TRISMUS [None]
